FAERS Safety Report 18487251 (Version 2)
Quarter: 2021Q2

REPORT INFORMATION
  Report Type: Report from Study
  Country: DE (occurrence: AU)
  Receive Date: 20201110
  Receipt Date: 20210409
  Transmission Date: 20210717
  Serious: Yes (Hospitalization, Other)
  Sender: FDA-Public Use
  Company Number: AU-ENDO PHARMACEUTICALS INC-2017-003549

PATIENT
  Age: 58 Year
  Sex: Male

DRUGS (8)
  1. AVEED [Suspect]
     Active Substance: TESTOSTERONE UNDECANOATE
     Dosage: 1000 MG, SINGLE
     Route: 030
     Dates: start: 20160729, end: 20160729
  2. AVEED [Suspect]
     Active Substance: TESTOSTERONE UNDECANOATE
     Indication: DIABETES PROPHYLAXIS
     Dosage: 1000 MG, SINGLE
     Route: 030
     Dates: start: 20150814, end: 20150814
  3. AVEED [Suspect]
     Active Substance: TESTOSTERONE UNDECANOATE
     Dosage: 1000 MG, SINGLE
     Route: 030
     Dates: start: 20160122, end: 20160122
  4. AVEED [Suspect]
     Active Substance: TESTOSTERONE UNDECANOATE
     Dosage: 1000 MG, UNK, TOTAL NUMBER OF DOSES PRIOR THE EVENT: 8
     Route: 030
     Dates: start: 20170331, end: 20170331
  5. AVEED [Suspect]
     Active Substance: TESTOSTERONE UNDECANOATE
     Dosage: 1000 MG, SINGLE
     Route: 030
     Dates: start: 20160422, end: 20160422
  6. AVEED [Suspect]
     Active Substance: TESTOSTERONE UNDECANOATE
     Dosage: 1000 MG, SINGLE
     Route: 030
     Dates: start: 20170113, end: 20170113
  7. AVEED [Suspect]
     Active Substance: TESTOSTERONE UNDECANOATE
     Dosage: 1000 MG, SINGLE
     Route: 030
     Dates: start: 20151106, end: 20151106
  8. AVEED [Suspect]
     Active Substance: TESTOSTERONE UNDECANOATE
     Dosage: 1000 MG, SINGLE
     Route: 030
     Dates: start: 20161007, end: 20161007

REACTIONS (1)
  - Benign prostatic hyperplasia [Unknown]

NARRATIVE: CASE EVENT DATE: 20170417
